FAERS Safety Report 5900665-9 (Version None)
Quarter: 2008Q3

REPORT INFORMATION
  Report Type: 
  Country: None (occurrence: None)
  Receive Date: 20080926
  Receipt Date: 20080922
  Transmission Date: 20090109
  Serious: Yes (Hospitalization)
  Sender: FDA-Public Use
  Company Number: UA-GENENTECH-268517

PATIENT
  Sex: Female
  Weight: 92 kg

DRUGS (13)
  1. BEVACIZUMAB [Suspect]
     Indication: BREAST CANCER METASTATIC
     Dosage: 1380 MG, Q3W
     Route: 042
     Dates: start: 20070612
  2. CAPECITABINE [Suspect]
     Indication: BREAST CANCER METASTATIC
     Dosage: 4000 UNK, UNK
     Dates: start: 20070612
  3. MITOXANTRONE [Suspect]
     Indication: BREAST CANCER METASTATIC
     Dosage: 20 UNK, UNK
     Dates: start: 20070612
  4. MITOMYCIN [Suspect]
     Indication: BREAST CANCER METASTATIC
     Dosage: 20 UNK, UNK
     Dates: start: 20070612
  5. METHOTREXATE [Suspect]
     Indication: BREAST CANCER METASTATIC
     Dosage: 60 UNK, UNK
     Dates: start: 20070612
  6. CONCOMITANT DRUG [Concomitant]
     Indication: DRUG USE FOR UNKNOWN INDICATION
     Dosage: UNK G, TID
     Dates: start: 20080710, end: 20080730
  7. CONCOMITANT DRUG [Concomitant]
     Dosage: 2 UNK, BID
     Dates: start: 20070817, end: 20080808
  8. CONCOMITANT DRUG [Concomitant]
     Dosage: UNK
     Dates: start: 20071020, end: 20080808
  9. MILDRONAT (UNK INGREDIENTS) [Concomitant]
     Indication: DRUG USE FOR UNKNOWN INDICATION
     Dosage: UNK
     Dates: start: 20080527, end: 20080730
  10. ASCORBIC ACID [Concomitant]
     Indication: DRUG USE FOR UNKNOWN INDICATION
     Dosage: UNK
     Dates: start: 20080527, end: 20080730
  11. VITAMIN B6 [Concomitant]
     Indication: DRUG USE FOR UNKNOWN INDICATION
     Dosage: UNK
     Dates: start: 20080527, end: 20080730
  12. CONCOMITANT DRUG [Concomitant]
     Dosage: UNK
     Dates: start: 20080527, end: 20080730
  13. CONCOMITANT DRUG [Concomitant]
     Dosage: UNK
     Dates: start: 20080527, end: 20080730

REACTIONS (1)
  - CORONARY ARTERY DISEASE [None]
